FAERS Safety Report 16747269 (Version 1)
Quarter: 2019Q3

REPORT INFORMATION
  Report Type: Spontaneous
  Country: US (occurrence: US)
  Receive Date: 20190827
  Receipt Date: 20190827
  Transmission Date: 20191005
  Serious: No
  Sender: FDA-Public Use
  Company Number: US-BAYER-2019-156665

PATIENT
  Age: 71 Year
  Sex: Female

DRUGS (22)
  1. ALLEGRA [Concomitant]
     Active Substance: FEXOFENADINE HYDROCHLORIDE
  2. LASIX [Concomitant]
     Active Substance: FUROSEMIDE
  3. LITHIUM. [Concomitant]
     Active Substance: LITHIUM
  4. MECLIZINE [Concomitant]
     Active Substance: MECLIZINE HYDROCHLORIDE
  5. MULTIVITAMINS [VITAMINS NOS] [Concomitant]
     Active Substance: VITAMINS
  6. DONEPEZIL. [Concomitant]
     Active Substance: DONEPEZIL
  7. ADVAIR HFA [Concomitant]
     Active Substance: FLUTICASONE PROPIONATE\SALMETEROL XINAFOATE
  8. LYRICA [Concomitant]
     Active Substance: PREGABALIN
  9. METOPROLOL. [Concomitant]
     Active Substance: METOPROLOL
  10. NITROGLYCERIN. [Concomitant]
     Active Substance: NITROGLYCERIN
  11. FANAPT [Concomitant]
     Active Substance: ILOPERIDONE
  12. ISOSORBIDE. [Concomitant]
     Active Substance: ISOSORBIDE
  13. AMLODIPINE [Concomitant]
     Active Substance: AMLODIPINE BESYLATE
  14. ABILIFY [Concomitant]
     Active Substance: ARIPIPRAZOLE
  15. LOTRIMIN ULTRA ANTIFUNGAL [Suspect]
     Active Substance: BUTENAFINE HYDROCHLORIDE
     Dosage: 1 DF, 1 APPLICATION TO THUMNAIL
     Route: 061
  16. ASPIRIN [ACETYLSALICYLIC ACID] [Concomitant]
     Active Substance: ASPIRIN
  17. FLEXERIL [CEFIXIME] [Concomitant]
     Active Substance: CEFIXIME
  18. LAMICTAL [Concomitant]
     Active Substance: LAMOTRIGINE
  19. ALBUTEROL [SALBUTAMOL SULFATE] [Concomitant]
     Active Substance: ALBUTEROL SULFATE
  20. ALLOPURINOL. [Concomitant]
     Active Substance: ALLOPURINOL
  21. LEVOTHYROXIN [Concomitant]
     Active Substance: LEVOTHYROXINE
  22. SINGULAIR [Concomitant]
     Active Substance: MONTELUKAST SODIUM

REACTIONS (2)
  - Incorrect route of product administration [Recovered/Resolved]
  - Product use in unapproved indication [Recovered/Resolved]

NARRATIVE: CASE EVENT DATE: 20190822
